FAERS Safety Report 5348945-2 (Version None)
Quarter: 2007Q2

REPORT INFORMATION
  Report Type: 
  Country: None (occurrence: None)
  Receive Date: 20070607
  Receipt Date: 20070529
  Transmission Date: 20071010
  Serious: Yes (Other)
  Sender: FDA-Public Use
  Company Number: PHEH2007US08008

PATIENT
  Sex: Female

DRUGS (8)
  1. ZELNORM [Suspect]
     Indication: CONSTIPATION
     Dosage: 6 MG, BID
     Dates: start: 20061201, end: 20070527
  2. NEXIUM [Concomitant]
  3. PRAVASTATIN [Concomitant]
  4. PREMARIN [Concomitant]
  5. SOMA [Concomitant]
  6. CLONAZEPAM [Concomitant]
  7. XANAX [Concomitant]
  8. OXYCONTIN [Concomitant]

REACTIONS (6)
  - ABDOMINAL DISTENSION [None]
  - CARDIAC DISORDER [None]
  - CARDIAC FLUTTER [None]
  - CHEST PAIN [None]
  - DYSPNOEA [None]
  - GAIT DISTURBANCE [None]
